FAERS Safety Report 4487935-9 (Version None)
Quarter: 2004Q4

REPORT INFORMATION
  Report Type: 
  Country: None (occurrence: None)
  Receive Date: 20041026
  Receipt Date: 20041012
  Transmission Date: 20050328
  Serious: Yes (Death, Hospitalization, Other)
  Sender: FDA-Public Use
  Company Number: USA040977073

PATIENT
  Age: 83 Year
  Sex: Male
  Weight: 59 kg

DRUGS (1)
  1. FORTEO [Suspect]
     Indication: OSTEOPOROSIS
     Dosage: 20 UG/1 DAY
     Dates: start: 20040201

REACTIONS (3)
  - MALIGNANT NEOPLASM OF SPINAL CORD [None]
  - SPINAL CORD COMPRESSION [None]
  - TREATMENT NONCOMPLIANCE [None]
